FAERS Safety Report 4895250-4 (Version None)
Quarter: 2006Q1

REPORT INFORMATION
  Report Type: 
  Country: None (occurrence: None)
  Receive Date: 20060130
  Receipt Date: 20030716
  Transmission Date: 20060701
  Serious: Yes (Hospitalization)
  Sender: FDA-Public Use
  Company Number: FR-GLAXOSMITHKLINE-B0304652A

PATIENT
  Age: 51 Year
  Sex: Female

DRUGS (6)
  1. MALARONE [Suspect]
     Indication: MALARIA PROPHYLAXIS
     Route: 048
     Dates: start: 20030413, end: 20030502
  2. DOLIPRANE [Concomitant]
     Indication: HEADACHE
     Dosage: 500MG TWICE PER DAY
     Route: 048
     Dates: start: 20030401
  3. SYMBICORT [Concomitant]
  4. FLIXONASE [Concomitant]
  5. ERYFLUID [Concomitant]
     Route: 050
  6. OESTRODOSE [Concomitant]
     Indication: HORMONE REPLACEMENT THERAPY
     Route: 065
     Dates: start: 19940101

REACTIONS (23)
  - ALANINE AMINOTRANSFERASE INCREASED [None]
  - ASPARTATE AMINOTRANSFERASE INCREASED [None]
  - AUTOIMMUNE HEPATITIS [None]
  - BILIRUBIN CONJUGATED INCREASED [None]
  - BLOOD ALKALINE PHOSPHATASE INCREASED [None]
  - BLOOD BILIRUBIN INCREASED [None]
  - BURN OESOPHAGEAL [None]
  - CHROMATURIA [None]
  - COLD SWEAT [None]
  - FAECES PALE [None]
  - FATIGUE [None]
  - GAMMA-GLUTAMYLTRANSFERASE INCREASED [None]
  - HEADACHE [None]
  - HEPATOCELLULAR DAMAGE [None]
  - HYPERGAMMAGLOBULINAEMIA [None]
  - JAUNDICE [None]
  - MALAISE [None]
  - NAUSEA [None]
  - POLYDIPSIA [None]
  - POLYURIA [None]
  - PROTHROMBIN TIME RATIO ABNORMAL [None]
  - STOMACH DISCOMFORT [None]
  - VOMITING [None]
